FAERS Safety Report 8932776 (Version 1)
Quarter: 2012Q4

REPORT INFORMATION
  Report Type: Report from Study
  Country: NL (occurrence: NL)
  Receive Date: 20121129
  Receipt Date: 20121129
  Transmission Date: 20130627
  Serious: Yes (Other)
  Sender: FDA-Public Use
  Company Number: NL-GENZYME-POMP-1002603

PATIENT

DRUGS (1)
  1. MYOZYME [Suspect]
     Indication: GLYCOGEN STORAGE DISEASE TYPE II
     Dosage: 40 mg/kg, qw
     Route: 042
     Dates: start: 20081120

REACTIONS (15)
  - Unresponsive to stimuli [Unknown]
  - Hypotonia [Unknown]
  - Cyanosis [Unknown]
  - Discomfort [Unknown]
  - Rash [Unknown]
  - Vomiting [Unknown]
  - Pallor [Unknown]
  - Oxygen saturation decreased [Unknown]
  - Flushing [Unknown]
  - Cough [Unknown]
  - Nausea [Unknown]
  - Hyperhidrosis [Unknown]
  - Diarrhoea [Unknown]
  - Pyrexia [Unknown]
  - Lip oedema [Unknown]
